FAERS Safety Report 7516973-4 (Version None)
Quarter: 2011Q2

REPORT INFORMATION
  Report Type: 
  Country: None (occurrence: None)
  Receive Date: 20110601
  Receipt Date: 20110527
  Transmission Date: 20111010
  Serious: Yes (Congenital Anomaly, Other)
  Sender: FDA-Public Use
  Company Number: JP-ABBOTT-11P-087-0719188-00

PATIENT
  Sex: Male
  Weight: 14.6 kg

DRUGS (4)
  1. MONTELUKAST SODIUM [Suspect]
     Indication: ASTHMA
     Route: 048
     Dates: start: 20091207
  2. PROCATEROL HCL [Suspect]
     Indication: PRODUCT USED FOR UNKNOWN INDICATION
  3. CLARITHROMYCIN [Suspect]
     Indication: PYREXIA
     Route: 048
     Dates: start: 20110412, end: 20110413
  4. COMBINATION DRUG(UNKNOWN PRODUCT) [Suspect]
     Indication: COUGH
     Route: 048
     Dates: start: 20110411, end: 20110418

REACTIONS (3)
  - ASTHENIA [None]
  - HEART RATE INCREASED [None]
  - MALAISE [None]
